FAERS Safety Report 4996539-0 (Version None)
Quarter: 2006Q2

REPORT INFORMATION
  Report Type: 
  Country: None (occurrence: None)
  Receive Date: 20060505
  Receipt Date: 20060420
  Transmission Date: 20061013
  Serious: Yes (Other)
  Sender: FDA-Public Use
  Company Number: 2006US-02082

PATIENT
  Age: 30 Year
  Sex: Female

DRUGS (2)
  1. ISOTRETINOIN [Suspect]
     Dosage: SEE IMAGE
     Route: 048
     Dates: start: 20060201, end: 20060301
  2. ISOTRETINOIN [Suspect]
     Dosage: SEE IMAGE
     Route: 048
     Dates: start: 20060201, end: 20060301

REACTIONS (6)
  - ANGINA PECTORIS [None]
  - BRAIN OEDEMA [None]
  - DEAFNESS UNILATERAL [None]
  - DEPRESSED MOOD [None]
  - EAR DISCOMFORT [None]
  - EAR PAIN [None]
